FAERS Safety Report 8761169 (Version 1)
Quarter: 2012Q4

REPORT INFORMATION
  Report Type: 
  Country: JP (occurrence: US)
  Receive Date: 20120830
  Receipt Date: 20120830
  Transmission Date: 20130627
  Serious: Yes (Other)
  Sender: FDA-Public Use
  Company Number: US-JNJFOC-20100705404

PATIENT
  Age: 71 None
  Sex: Female
  Weight: 65.77 kg

DRUGS (6)
  1. LEVAQUIN [Suspect]
     Indication: BRONCHITIS
     Route: 048
  2. LEVAQUIN [Suspect]
     Indication: BACTERIAL INFECTION
     Route: 048
  3. PREDNISOLONE [Suspect]
     Indication: BRONCHITIS
     Route: 042
  4. PREDNISOLONE [Suspect]
     Indication: BRONCHIAL HYPERREACTIVITY
     Route: 042
  5. METHYLPREDNISOLONE [Suspect]
     Indication: BRONCHIAL HYPERREACTIVITY
     Route: 042
  6. METHYLPREDNISOLONE [Suspect]
     Indication: BRONCHITIS
     Route: 042

REACTIONS (3)
  - Rotator cuff syndrome [Unknown]
  - Rotator cuff syndrome [Unknown]
  - Erythema [Unknown]
